FAERS Safety Report 8949873 (Version 1)
Quarter: 2012Q4

REPORT INFORMATION
  Report Type: 
  Country: IT (occurrence: IT)
  Receive Date: 20121206
  Receipt Date: 20121206
  Transmission Date: 20130627
  Serious: Yes (Hospitalization)
  Sender: FDA-Public Use
  Company Number: IT-ROXANE LABORATORIES, INC.-2012-RO-02498RO

PATIENT
  Age: 39 Year
  Sex: Female

DRUGS (5)
  1. QUETIAPINE FUMARATE [Suspect]
     Dosage: 25 mg
  2. ZOLPIDEM [Suspect]
     Indication: ANXIETY
     Dosage: 400 mg
     Route: 048
  3. ZOLPIDEM [Suspect]
     Dosage: 1800 mg
     Route: 048
  4. FLUOXETINE [Suspect]
     Dosage: 20 mg
  5. VALPROATE [Concomitant]
     Indication: CONVULSION
     Dosage: 1000 mg

REACTIONS (1)
  - Drug dependence [Recovered/Resolved]
